FAERS Safety Report 5529562-8 (Version None)
Quarter: 2007Q4

REPORT INFORMATION
  Report Type: 
  Country: None (occurrence: None)
  Receive Date: 20071129
  Receipt Date: 20071122
  Transmission Date: 20080405
  Serious: Yes (Hospitalization)
  Sender: FDA-Public Use
  Company Number: BR-ELI_LILLY_AND_COMPANY-BR200711005281

PATIENT
  Age: 80 Year
  Sex: Female

DRUGS (1)
  1. HUMULIN N [Suspect]
     Indication: DIABETES MELLITUS
     Dosage: 45 IU, 2/D
     Route: 058
     Dates: start: 19920101

REACTIONS (2)
  - HYPOGLYCAEMIA [None]
  - PRURITUS [None]
